FAERS Safety Report 9339425 (Version 1)
Quarter: 2013Q2

REPORT INFORMATION
  Report Type: Spontaneous
  Country: TN (occurrence: TN)
  Receive Date: 20130610
  Receipt Date: 20130610
  Transmission Date: 20140414
  Serious: Yes (Other)
  Sender: FDA-Public Use
  Company Number: TN-PFIZER INC-2013169790

PATIENT
  Age: 32 Year
  Sex: Male

DRUGS (4)
  1. VORICONAZOLE [Suspect]
     Indication: ASPERGILLUS INFECTION
     Dosage: 400 MG, DAILY
  2. SIROLIMUS [Interacting]
     Indication: KAPOSI^S SARCOMA
     Dosage: 4 MG, DAILY
  3. PREDNISONE [Concomitant]
     Indication: BONE MARROW FAILURE
     Dosage: UNK
  4. CYCLOSPORINE [Concomitant]
     Indication: BONE MARROW FAILURE

REACTIONS (5)
  - Drug interaction [Unknown]
  - Drug level above therapeutic [Recovered/Resolved]
  - Renal failure [Recovered/Resolved]
  - Hyperlipidaemia [Recovered/Resolved]
  - Pancytopenia [Recovered/Resolved]
